FAERS Safety Report 8965726 (Version 2)
Quarter: 2013Q1

REPORT INFORMATION
  Report Type: Spontaneous
  Country: GB (occurrence: None)
  Receive Date: 20121204
  Receipt Date: 20130122
  Transmission Date: 20140127
  Serious: Yes (Life-Threatening)
  Sender: FDA-Public Use
  Company Number: FK201203573

PATIENT
  Age: 68 Year
  Sex: Male
  Weight: 77.2 kg

DRUGS (6)
  1. IRINOTECAN [Suspect]
     Indication: PRODUCT USED FOR UNKNOWN INDICATION
     Route: 042
     Dates: start: 20121022
  2. XELODA [Suspect]
     Indication: COLORECTAL CANCER METASTATIC
     Dosage: 2 IN 1 D
     Route: 048
     Dates: start: 20121022
  3. DEXAMETHASONE (DEXAMETHASONE) [Concomitant]
  4. DOMPERIDONE (DOMPERIDONE) [Concomitant]
  5. HYOSCINE HYDROBROMIDE (HYOSCINE HYDROBROMIDE) [Concomitant]
  6. ONDANSETRON (ONDANSETRON) [Concomitant]

REACTIONS (1)
  - Cerebrovascular accident [None]
